FAERS Safety Report 8876201 (Version 1)
Quarter: 2012Q4

REPORT INFORMATION
  Report Type: 
  Country: FR (occurrence: FR)
  Receive Date: 20121030
  Receipt Date: 20121030
  Transmission Date: 20130627
  Serious: Yes (Hospitalization)
  Sender: FDA-Public Use
  Company Number: FR-B.I. PHARMACEUTICALS,INC./RIDGEFIELD-2012-FF-01534FF

PATIENT
  Sex: Female

DRUGS (2)
  1. PRADAXA [Suspect]
     Route: 048
  2. FURTHER MEDICATION NOT SPECIFIED [Concomitant]

REACTIONS (1)
  - Confusional state [Unknown]
